FAERS Safety Report 5577865-3 (Version None)
Quarter: 2007Q4

REPORT INFORMATION
  Report Type: 
  Country: None (occurrence: None)
  Receive Date: 20071231
  Receipt Date: 20071220
  Transmission Date: 20080405
  Serious: Yes (Hospitalization)
  Sender: FDA-Public Use
  Company Number: JP-SANOFI-SYNTHELABO-A01200713309

PATIENT
  Sex: Female
  Weight: 37.4 kg

DRUGS (7)
  1. TAKEPRON [Concomitant]
     Indication: ACUTE MYOCARDIAL INFARCTION
     Dosage: 15 MG
     Route: 048
     Dates: start: 20071025
  2. PANALDINE [Concomitant]
     Indication: ACUTE MYOCARDIAL INFARCTION
     Dosage: 200 MG
     Route: 048
     Dates: start: 20071025
  3. LIPITOR [Concomitant]
     Indication: ACUTE MYOCARDIAL INFARCTION
     Dosage: 10 MG
     Route: 048
     Dates: start: 20071025
  4. ASPIRIN [Concomitant]
     Indication: ACUTE MYOCARDIAL INFARCTION
     Dosage: 100 MG
     Route: 048
     Dates: start: 20071025
  5. LOBU [Interacting]
     Indication: POSTOPERATIVE ANALGESIA
     Route: 048
     Dates: start: 20071025, end: 20071025
  6. MYSLEE [Suspect]
     Indication: INSOMNIA
     Route: 048
     Dates: start: 20071025, end: 20071025
  7. DIOVAN [Concomitant]
     Indication: ACUTE MYOCARDIAL INFARCTION
     Dosage: 40 MG
     Route: 048
     Dates: start: 20071025

REACTIONS (2)
  - COMA [None]
  - DRUG INTERACTION POTENTIATION [None]
